FAERS Safety Report 9640234 (Version 1)
Quarter: 2013Q4

REPORT INFORMATION
  Report Type: Spontaneous
  Country: US (occurrence: US)
  Receive Date: 20131023
  Receipt Date: 20131023
  Transmission Date: 20140711
  Serious: No
  Sender: FDA-Public Use
  Company Number: US-PFIZER INC-2013301738

PATIENT
  Sex: 0

DRUGS (1)
  1. SOMAVERT [Suspect]
     Dosage: 30 MG, UNK

REACTIONS (1)
  - Insulin-like growth factor increased [Unknown]
